FAERS Safety Report 7055447-4 (Version None)
Quarter: 2010Q4

REPORT INFORMATION
  Report Type: 
  Country: None (occurrence: None)
  Receive Date: 20101021
  Receipt Date: 20101014
  Transmission Date: 20110411
  Serious: Yes (Hospitalization)
  Sender: FDA-Public Use
  Company Number: JP-JNJCH-2010023749

PATIENT
  Age: 84 Year
  Sex: Male

DRUGS (1)
  1. RIUP %5 [Suspect]
     Indication: ANDROGENETIC ALOPECIA
     Dosage: TEXT:1ML 2X DAY
     Route: 061
     Dates: start: 20090603, end: 20100913

REACTIONS (2)
  - LIVER DISORDER [None]
  - NEPHROPATHY [None]
